FAERS Safety Report 8525124-9 (Version None)
Quarter: 2012Q3

REPORT INFORMATION
  Report Type: 
  Country: None (occurrence: None)
  Receive Date: 20120720
  Receipt Date: 20120712
  Transmission Date: 20120928
  Serious: Yes (Death, Hospitalization, Other)
  Sender: FDA-Public Use
  Company Number: US-BAXTER-2012BAX010531

PATIENT
  Sex: Female

DRUGS (1)
  1. DIANEAL [Suspect]
     Indication: PERITONEAL DIALYSIS
     Route: 033
     Dates: end: 20120618

REACTIONS (3)
  - GASTROINTESTINAL INJURY [None]
  - ALTERED STATE OF CONSCIOUSNESS [None]
  - ELECTROLYTE IMBALANCE [None]
